FAERS Safety Report 13616536 (Version 1)
Quarter: 2017Q2

REPORT INFORMATION
  Report Type: Spontaneous
  Country: US (occurrence: US)
  Receive Date: 20170606
  Receipt Date: 20170606
  Transmission Date: 20170830
  Serious: Yes (Other)
  Sender: FDA-Public Use
  Company Number: US-SA-2016SA087616

PATIENT
  Age: 68 Year
  Sex: Male

DRUGS (2)
  1. HUMULIN NOS [Concomitant]
     Active Substance: INSULIN HUMAN
  2. LANTUS [Suspect]
     Active Substance: INSULIN GLARGINE
     Indication: TYPE 1 DIABETES MELLITUS
     Dosage: FORM: VIALS DOSE:20 UNIT(S)
     Route: 065

REACTIONS (5)
  - Dysphagia [Unknown]
  - Tremor [Unknown]
  - Trismus [Unknown]
  - Depressed level of consciousness [Unknown]
  - Hypoglycaemic seizure [Unknown]

NARRATIVE: CASE EVENT DATE: 20160430
